FAERS Safety Report 12231459 (Version 1)
Quarter: 2016Q2

REPORT INFORMATION
  Report Type: Spontaneous
  Country: BR (occurrence: BR)
  Receive Date: 20160401
  Receipt Date: 20160401
  Transmission Date: 20160815
  Serious: Yes (Death)
  Sender: FDA-Public Use
  Company Number: BR-SA-2016SA064792

PATIENT

DRUGS (1)
  1. LANTUS [Suspect]
     Active Substance: INSULIN GLARGINE
     Dosage: STRENGHT- 100 IU VIAL AMPLE 10 ML
     Route: 065

REACTIONS (2)
  - Incorrect product storage [Unknown]
  - Death [Fatal]
